FAERS Safety Report 17606852 (Version 1)
Quarter: 2020Q1

REPORT INFORMATION
  Report Type: Spontaneous
  Country: US (occurrence: US)
  Receive Date: 20200331
  Receipt Date: 20200331
  Transmission Date: 20200409
  Serious: Yes (Hospitalization)
  Sender: FDA-Public Use
  Company Number: US-009507513-2003USA010189

PATIENT
  Age: 63 Year
  Sex: Female
  Weight: 70.3 kg

DRUGS (3)
  1. INLYTA [Concomitant]
     Active Substance: AXITINIB
     Dosage: 7 MILLIGRAM, BID
     Dates: start: 20200214
  2. KEYTRUDA [Suspect]
     Active Substance: PEMBROLIZUMAB
     Dosage: UNK
     Dates: start: 20190801, end: 20200207
  3. INLYTA [Concomitant]
     Active Substance: AXITINIB
     Indication: RENAL CELL CARCINOMA STAGE IV
     Dosage: 5 MILLIGRAM, BID
     Dates: start: 20190801, end: 20200214

REACTIONS (7)
  - Palmar-plantar erythrodysaesthesia syndrome [Not Recovered/Not Resolved]
  - Hypertension [Not Recovered/Not Resolved]
  - Dehydration [Unknown]
  - Vomiting [Recovered/Resolved]
  - Colitis [Unknown]
  - Nausea [Recovered/Resolved]
  - Stomatitis [Not Recovered/Not Resolved]

NARRATIVE: CASE EVENT DATE: 20190801
